FAERS Safety Report 5280205-0 (Version None)
Quarter: 2007Q1

REPORT INFORMATION
  Report Type: 
  Country: None (occurrence: None)
  Receive Date: 20061215
  Receipt Date: 20060718
  Transmission Date: 20070707
  Serious: Yes (Disabling, Other)
  Sender: FDA-Public Use
  Company Number: HQWYE146219JUL06

PATIENT
  Age: 37 Year
  Sex: Male
  Weight: 72.64 kg

DRUGS (1)
  1. EFFEXOR XR [Suspect]
     Dosage: 225 MG 1X PER 1 DAY, ORAL
     Route: 048
     Dates: start: 20010101, end: 20060101

REACTIONS (1)
  - CATARACT [None]
